FAERS Safety Report 5822489-3 (Version None)
Quarter: 2008Q3

REPORT INFORMATION
  Report Type: 
  Country: None (occurrence: None)
  Receive Date: 20080723
  Receipt Date: 20080723
  Transmission Date: 20090109
  Serious: Yes (Other)
  Sender: FDA-Public Use
  Company Number: None

PATIENT
  Age: 1 Year
  Sex: Male
  Weight: 13.4 kg

DRUGS (2)
  1. CHLORAL HYDRATE 100MG/ML PHARMACEUTICAL ASSOCIATE-GREENVIE [Suspect]
     Indication: ANXIETY
     Dosage: 670 MG ONCE PO; 335 MG  30 AFTER FIRST DOS  PO
     Route: 048
     Dates: start: 20080718, end: 20080718
  2. CHLORAL HYDRATE 100MG/ML PHARMACEUTICAL ASSOCIATE-GREENVIE [Suspect]
     Indication: ANXIETY
     Dosage: 670 MG ONCE PO; 335 MG  30 AFTER FIRST DOS  PO
     Route: 048
     Dates: start: 20080718, end: 20080718

REACTIONS (1)
  - DRUG INEFFECTIVE [None]
